FAERS Safety Report 14350768 (Version 1)
Quarter: 2018Q1

REPORT INFORMATION
  Report Type: Spontaneous
  Country: US (occurrence: US)
  Receive Date: 20180104
  Receipt Date: 20180104
  Transmission Date: 20180509
  Serious: No
  Sender: FDA-Public Use
  Company Number: US-GLAXOSMITHKLINE-US2017201538

PATIENT
  Sex: Female

DRUGS (1)
  1. TRIAMTERENE AND HYDROCHLOROTHIAZIDE [Suspect]
     Active Substance: HYDROCHLOROTHIAZIDE\TRIAMTERENE
     Indication: PRODUCT USED FOR UNKNOWN INDICATION
     Dosage: UNK UNK, U
     Dates: start: 2016

REACTIONS (4)
  - Ocular icterus [Recovering/Resolving]
  - Dyspnoea [Recovering/Resolving]
  - Swollen tongue [Recovering/Resolving]
  - Dry mouth [Recovering/Resolving]

NARRATIVE: CASE EVENT DATE: 2016
